FAERS Safety Report 11693665 (Version 1)
Quarter: 2015Q4

REPORT INFORMATION
  Report Type: Report from Study
  Country: CN (occurrence: CN)
  Receive Date: 20151103
  Receipt Date: 20151103
  Transmission Date: 20160304
  Serious: Yes (Hospitalization, Other)
  Sender: FDA-Public Use
  Company Number: CN-BAYER-2015-411648

PATIENT
  Age: 45 Year
  Sex: Male

DRUGS (1)
  1. NEXAVAR [Suspect]
     Active Substance: SORAFENIB
     Indication: HEPATOCELLULAR CARCINOMA
     Dosage: 400 MG, BID
     Route: 048
     Dates: start: 20150403, end: 20151018

REACTIONS (9)
  - Hepatocellular carcinoma [None]
  - Metastases to lung [None]
  - Joint swelling [None]
  - Alpha 1 foetoprotein increased [None]
  - Ligament sprain [None]
  - Diplopia [None]
  - Arthralgia [None]
  - Arthralgia [None]
  - Vision blurred [None]

NARRATIVE: CASE EVENT DATE: 201507
